FAERS Safety Report 6845223-7 (Version None)
Quarter: 2010Q3

REPORT INFORMATION
  Report Type: 
  Country: None (occurrence: None)
  Receive Date: 20100715
  Receipt Date: 20070920
  Transmission Date: 20110219
  Serious: No
  Sender: FDA-Public Use
  Company Number: US-PFIZER INC-2007068485

PATIENT
  Sex: Male
  Weight: 93.181 kg

DRUGS (4)
  1. CHANTIX [Suspect]
     Indication: SMOKING CESSATION THERAPY
     Dates: start: 20070101, end: 20070101
  2. TENORETIC 100 [Concomitant]
  3. ACETYLSALICYLIC ACID [Concomitant]
  4. OTHER HYPNOTICS AND SEDATIVES [Concomitant]

REACTIONS (8)
  - CHILLS [None]
  - DIZZINESS [None]
  - FEELING ABNORMAL [None]
  - HEADACHE [None]
  - HYPERHIDROSIS [None]
  - MEMORY IMPAIRMENT [None]
  - NAUSEA [None]
  - PYREXIA [None]
